FAERS Safety Report 4433972-X (Version None)
Quarter: 2004Q3

REPORT INFORMATION
  Report Type: 
  Country: None (occurrence: None)
  Receive Date: 20040825
  Receipt Date: 20040810
  Transmission Date: 20050211
  Serious: Yes (Other)
  Sender: FDA-Public Use
  Company Number: USA040874992

PATIENT
  Age: 82 Year
  Sex: Female
  Weight: 52 kg

DRUGS (14)
  1. EVISTA [Suspect]
     Indication: OSTEOPOROSIS
     Dosage: 60 MG/1 DAY
     Dates: start: 20030101, end: 20040101
  2. FORTEO [Suspect]
     Indication: OSTEOPOROSIS
     Dosage: 20 UG/1 DAY
     Dates: start: 20040601
  3. CALTRATE PLUS [Concomitant]
  4. BABY ASPIIN (ACETYLSALICYLIC ACID) [Concomitant]
  5. ARICEPT [Concomitant]
  6. LIDODERM (LIDOCAINE) [Concomitant]
  7. ISINOPRIL [Concomitant]
  8. PRILOSEC [Concomitant]
  9. MULTI-VITAMIN [Concomitant]
  10. ULTRACET [Concomitant]
  11. COMPAZINE [Concomitant]
  12. FENTANYL [Concomitant]
  13. AMBIEN [Concomitant]
  14. MIACALCIN [Concomitant]

REACTIONS (7)
  - ANOREXIA [None]
  - BODY HEIGHT DECREASED [None]
  - DEMENTIA [None]
  - MALAISE [None]
  - PNEUMONIA [None]
  - SPINAL COMPRESSION FRACTURE [None]
  - WEIGHT DECREASED [None]
